FAERS Safety Report 9362023 (Version 1)
Quarter: 2013Q2

REPORT INFORMATION
  Report Type: Spontaneous
  Country: US (occurrence: US)
  Receive Date: 20130621
  Receipt Date: 20130621
  Transmission Date: 20140414
  Serious: Yes (Other)
  Sender: FDA-Public Use
  Company Number: CHPA2013US010099

PATIENT
  Age: 57 Year
  Sex: Male

DRUGS (1)
  1. THERAPEUTIC MINERAL ICE [Suspect]
     Indication: MUSCULOSKELETAL PAIN
     Dosage: RUBBED ON SHOULDER TWICE
     Route: 061
     Dates: start: 201306, end: 201306

REACTIONS (4)
  - Hypersensitivity [Unknown]
  - Furuncle [Unknown]
  - Secretion discharge [Unknown]
  - Erythema [Unknown]
